FAERS Safety Report 8975299 (Version 1)
Quarter: 2012Q4

REPORT INFORMATION
  Report Type: 
  Country: US (occurrence: US)
  Receive Date: 20121219
  Receipt Date: 20121219
  Transmission Date: 20130627
  Serious: No
  Sender: FDA-Public Use
  Company Number: US-PFIZER INC-2012317136

PATIENT
  Age: 60 Year
  Sex: Male
  Weight: 114 kg

DRUGS (4)
  1. VIAGRA [Suspect]
     Indication: ERECTILE DYSFUNCTION
     Dosage: 50 mg, as needed
     Dates: start: 2012
  2. VIAGRA [Interacting]
     Dosage: 100 mg, as needed
  3. ANDROGEL [Interacting]
     Indication: BLOOD TESTOSTERONE DECREASED
     Dosage: UNK, daily every morning
     Dates: start: 2012
  4. FLOMAX [Concomitant]
     Indication: ENLARGED PROSTATE
     Dosage: UNK

REACTIONS (2)
  - Drug interaction [Unknown]
  - Drug ineffective [Unknown]
